FAERS Safety Report 12994879 (Version 2)
Quarter: 2016Q4

REPORT INFORMATION
  Report Type: Report from Study
  Country: IT (occurrence: IT)
  Receive Date: 20161202
  Receipt Date: 20161211
  Transmission Date: 20170207
  Serious: Yes (Hospitalization)
  Sender: FDA-Public Use
  Company Number: IT-TEVA-716098ACC

PATIENT
  Age: 52 Year
  Sex: Female

DRUGS (1)
  1. LORAZEPAM. [Suspect]
     Active Substance: LORAZEPAM
     Indication: DRUG ABUSE
     Dosage: 20 DF TOTAL
     Route: 048
     Dates: start: 20150310, end: 20150310

REACTIONS (4)
  - Drug abuse [Recovering/Resolving]
  - Depressed mood [Recovering/Resolving]
  - Aspartate aminotransferase increased [Recovering/Resolving]
  - Sopor [Recovering/Resolving]

NARRATIVE: CASE EVENT DATE: 20150310
